FAERS Safety Report 9234592 (Version 2)
Quarter: 2013Q2

REPORT INFORMATION
  Report Type: Spontaneous
  Country: US (occurrence: US)
  Receive Date: 20130416
  Receipt Date: 20130416
  Transmission Date: 20140414
  Serious: No
  Sender: FDA-Public Use
  Company Number: US-MYLANLABS-2013S1001285

PATIENT
  Age: 66 Year
  Sex: Female

DRUGS (11)
  1. VALSARTAN AND HYDROCHLOROTHIAZIDE TABLETS [Suspect]
     Indication: HYPERTENSION
     Route: 048
     Dates: start: 20121230, end: 20130107
  2. VALSARTAN AND HYDROCHLOROTHIAZIDE TABLETS [Suspect]
     Indication: HYPERTENSION
     Route: 048
     Dates: start: 20130108, end: 20130128
  3. FLECAINIDE [Concomitant]
     Indication: VENTRICULAR ARRHYTHMIA
  4. MAGNESIUM OXIDE [Concomitant]
     Indication: VENTRICULAR ARRHYTHMIA
  5. TOPAMAX [Concomitant]
     Indication: MIGRAINE
  6. ASPIRIN [Concomitant]
  7. LEVOTHYROXINE [Concomitant]
     Indication: HYPOTHYROIDISM
  8. CALCIUM WITH VITAMIN D [Concomitant]
  9. PREMPRO [Concomitant]
     Indication: MENOPAUSE
  10. GABAPENTIN [Concomitant]
     Indication: COMPLEX REGIONAL PAIN SYNDROME
  11. BUTALBITAL+APAP+CAFFEINE [Concomitant]
     Indication: HEADACHE

REACTIONS (5)
  - Headache [Recovering/Resolving]
  - Dizziness [Recovering/Resolving]
  - Blood pressure decreased [Recovering/Resolving]
  - Blood pressure orthostatic decreased [Recovering/Resolving]
  - Cough [Recovering/Resolving]
